FAERS Safety Report 12388680 (Version 2)
Quarter: 2016Q2

REPORT INFORMATION
  Report Type: Spontaneous
  Country: US (occurrence: US)
  Receive Date: 20160520
  Receipt Date: 20160524
  Transmission Date: 20160815
  Serious: No
  Sender: FDA-Public Use
  Company Number: US-PFIZER INC-2016258175

PATIENT
  Sex: Female

DRUGS (1)
  1. ADVIL [Suspect]
     Active Substance: IBUPROFEN
     Dosage: 3 DF, 1X/DAY (TAKE 3 ADVIL IN THE MORNING)

REACTIONS (4)
  - Product taste abnormal [Unknown]
  - Dry mouth [Unknown]
  - Dysgeusia [Unknown]
  - Intentional product use issue [Unknown]
